FAERS Safety Report 4273650-3 (Version None)
Quarter: 2004Q1

REPORT INFORMATION
  Report Type: 
  Country: None (occurrence: None)
  Receive Date: 20040114
  Receipt Date: 20031230
  Transmission Date: 20041129
  Serious: Yes (Hospitalization, Other)
  Sender: FDA-Public Use
  Company Number: NSADSS2003002811

PATIENT
  Age: 58 Year
  Sex: Male
  Weight: 97.5234 kg

DRUGS (27)
  1. REMICADE [Suspect]
     Indication: RHEUMATOID ARTHRITIS
     Dosage: 295 MG, 1 IN 1 AS NECESSARY, INTRAVENOUS DRIP
     Route: 041
     Dates: start: 20010531, end: 20010531
  2. REMICADE [Suspect]
     Indication: RHEUMATOID ARTHRITIS
     Dosage: 295 MG, 1 IN 1 AS NECESSARY, INTRAVENOUS DRIP
     Route: 041
     Dates: start: 20010615, end: 20010615
  3. REMICADE [Suspect]
     Indication: RHEUMATOID ARTHRITIS
     Dosage: 295 MG, 1 IN 1 AS NECESSARY, INTRAVENOUS DRIP
     Route: 041
     Dates: start: 20010713, end: 20010713
  4. ETHAMBUTOL (ETHAMBUTOL) [Suspect]
     Indication: DISSEMINATED TUBERCULOSIS
     Dosage: 4000 MG
     Dates: start: 20010801, end: 20010901
  5. AMIKACIN [Suspect]
     Dosage: SEE IMAGE
     Route: 041
     Dates: start: 20011101, end: 20011210
  6. AMIKACIN [Suspect]
     Dosage: SEE IMAGE
     Route: 041
     Dates: start: 20011210, end: 20011227
  7. ISONIAZID [Suspect]
     Dates: start: 20010801
  8. DIPHENHYDRAMINE HCL [Concomitant]
  9. ACETAMINOPHEN [Concomitant]
  10. HYDROCODONE/ACETAMINOPHEN (HYDROCODONE) [Concomitant]
  11. GLUCOPHAGE [Concomitant]
  12. GLIPIZIDE [Concomitant]
  13. CARDURA [Concomitant]
  14. DILTIAZEM XR (DILTIAZEM) [Concomitant]
  15. PRINIVIL [Concomitant]
  16. ATENOLOL [Concomitant]
  17. RIFAMPICIN [Concomitant]
  18. PYRAZINAMIDE [Concomitant]
  19. ARAVA [Concomitant]
  20. PLAQUENIL [Concomitant]
  21. CLONIDINE [Concomitant]
  22. TERAZOSIN (TERAZOSIN) [Concomitant]
  23. PROMETHAZINE [Concomitant]
  24. VICODIN [Concomitant]
  25. PROTONIX [Concomitant]
  26. INSULIN [Concomitant]
  27. AMOXICILLIN [Concomitant]

REACTIONS (10)
  - ARTHRALGIA [None]
  - BLOOD PRESSURE INCREASED [None]
  - BURSITIS [None]
  - DIABETIC RETINOPATHY [None]
  - DIARRHOEA [None]
  - DRUG EFFECT DECREASED [None]
  - INJURY [None]
  - MEDICATION ERROR [None]
  - PSOAS ABSCESS [None]
  - TUBERCULOSIS [None]
